FAERS Safety Report 4685270-7 (Version None)
Quarter: 2005Q2

REPORT INFORMATION
  Report Type: 
  Country: None (occurrence: None)
  Receive Date: 20050608
  Receipt Date: 20050531
  Transmission Date: 20051028
  Serious: Yes (Hospitalization)
  Sender: FDA-Public Use
  Company Number: US-JNJFOC-20050600877

PATIENT
  Sex: Male

DRUGS (2)
  1. DURAGESIC-100 [Suspect]
     Route: 062
     Dates: start: 20010101
  2. DURAGESIC-100 [Suspect]
     Route: 062
     Dates: start: 20010101

REACTIONS (1)
  - SURGERY [None]
